FAERS Safety Report 6163556-7 (Version None)
Quarter: 2009Q2

REPORT INFORMATION
  Report Type: 
  Country: None (occurrence: None)
  Receive Date: 20090420
  Receipt Date: 20090420
  Transmission Date: 20091009
  Serious: Yes (Hospitalization)
  Sender: FDA-Public Use
  Company Number: None

PATIENT
  Sex: Female
  Weight: 63.5036 kg

DRUGS (4)
  1. WARFARIN SODIUM [Suspect]
     Indication: ANKLE FRACTURE
     Dosage: 4 MG OR 2 MG ONCE DAILY PO PO
     Route: 048
     Dates: start: 20090403, end: 20090405
  2. WARFARIN SODIUM [Suspect]
     Indication: PULMONARY EMBOLISM
     Dosage: 4 MG OR 2 MG ONCE DAILY PO PO
     Route: 048
     Dates: start: 20090403, end: 20090405
  3. WARFARIN SODIUM [Suspect]
     Indication: ANKLE FRACTURE
     Dosage: 4 MG OR 2 MG ONCE DAILY PO PO
     Route: 048
     Dates: start: 20090416, end: 20090416
  4. WARFARIN SODIUM [Suspect]
     Indication: PULMONARY EMBOLISM
     Dosage: 4 MG OR 2 MG ONCE DAILY PO PO
     Route: 048
     Dates: start: 20090416, end: 20090416

REACTIONS (3)
  - CHEST PAIN [None]
  - INTERNATIONAL NORMALISED RATIO INCREASED [None]
  - PRODUCT QUALITY ISSUE [None]
